FAERS Safety Report 8376548-4 (Version None)
Quarter: 2012Q2

REPORT INFORMATION
  Report Type: 
  Country: None (occurrence: None)
  Receive Date: 20120518
  Receipt Date: 20120507
  Transmission Date: 20120825
  Serious: Yes (Hospitalization, Other)
  Sender: FDA-Public Use
  Company Number: 1203-119

PATIENT
  Age: 80 Year
  Sex: Male

DRUGS (15)
  1. CICLOPIROX 0.77% (CICLOPIROX) [Concomitant]
  2. PLAVIX [Concomitant]
  3. PROSCAR [Concomitant]
  4. LIPITOR [Concomitant]
  5. FLOMAX [Concomitant]
  6. ASPIRIN [Concomitant]
  7. MACULAR HEALTH FORMULA [Concomitant]
  8. CIPRO [Concomitant]
  9. MELOXICAM [Concomitant]
  10. PROTONIX [Concomitant]
  11. ZESTRIL [Concomitant]
  12. TOPROL-XL [Concomitant]
  13. EYLEA [Suspect]
     Indication: MACULAR DEGENERATION
     Dosage: 0.05 ML, 1 IN 1 M, INTRAVITREAL
     Dates: start: 20120222
  14. BETAMETHASONE DIPROPIONATE 0.05% (BETAMETHASONE DIPROPIONATE) [Concomitant]
  15. LOSARTAN POTASSIUM [Concomitant]

REACTIONS (2)
  - MYOCARDIAL INFARCTION [None]
  - CORONARY ARTERY OCCLUSION [None]
